FAERS Safety Report 6698747-X (Version None)
Quarter: 2010Q2

REPORT INFORMATION
  Report Type: 
  Country: None (occurrence: None)
  Receive Date: 20100427
  Receipt Date: 20100415
  Transmission Date: 20101027
  Serious: Yes (Hospitalization, Other)
  Sender: FDA-Public Use
  Company Number: PHHY2010US23003

PATIENT
  Sex: Female
  Weight: 141 kg

DRUGS (16)
  1. AFINITOR [Suspect]
     Dosage: 10 MG, QD
     Route: 048
     Dates: start: 20090515
  2. AFINITOR [Suspect]
     Dosage: 5 MG, QD
     Route: 048
     Dates: end: 20100110
  3. ATENOLOL [Concomitant]
     Dosage: 50 MG DAILY
  4. CLONIDINE [Concomitant]
     Dosage: 0.1 MG, BID
  5. COUMADIN [Concomitant]
     Dosage: 2.5 MG, EVERY OTHER DAY
  6. COUMADIN [Concomitant]
     Dosage: 5 MG, EVERY OTHER DAY
  7. DEMADEX [Concomitant]
     Dosage: 50 MG, BID
  8. DIOVAN [Concomitant]
     Dosage: 160 MG DAILY
  9. LORTAB [Concomitant]
     Dosage: 7.5 MG, PRN
  10. MAGNESIUM [Concomitant]
     Dosage: 400 MG DAILY
  11. MEGACE [Concomitant]
     Dosage: 10 MG DAILY
  12. NEXIUM [Concomitant]
     Dosage: 40 MG DAILY
  13. PLENDIL [Concomitant]
     Dosage: 10 MG DAILY
  14. POTASSIUM [Concomitant]
     Dosage: 20 MEQ, BID
  15. PHENERGAN [Concomitant]
     Dosage: 25 MG, PRN
  16. MIRACLE MOUTHWASH [Concomitant]
     Dosage: UNK

REACTIONS (4)
  - DYSPNOEA [None]
  - PNEUMONITIS [None]
  - POLYURIA [None]
  - PULMONARY OEDEMA [None]
